FAERS Safety Report 6945118 (Version 4)
Quarter: 2019Q2

REPORT INFORMATION
  Report Type: Spontaneous
  Country: JP (occurrence: JP)
  Receive Date: 20090319
  Receipt Date: 20190521
  Transmission Date: 20190711
  Serious: Yes (Death, Other)
  Sender: FDA-Public Use
  Company Number: PHHY2009JP09623

PATIENT
  Age: 64 Year
  Sex: Female
  Weight: 45 kg

DRUGS (30)
  1. OMEPRAL [Concomitant]
     Active Substance: OMEPRAZOLE
     Indication: PRODUCT USED FOR UNKNOWN INDICATION
     Dosage: 20 MG, UNK
     Route: 048
     Dates: start: 20090106, end: 20090114
  2. OMEPRAL [Concomitant]
     Active Substance: OMEPRAZOLE
     Dosage: 40 MG, UNK
     Dates: start: 20090114
  3. LOXONIN [Concomitant]
     Active Substance: LOXOPROFEN SODIUM
     Indication: PRODUCT USED FOR UNKNOWN INDICATION
     Dosage: 180 MG, UNK
     Route: 048
     Dates: start: 20090106, end: 20090114
  4. VITAMEDIN [Concomitant]
     Active Substance: CYANOCOBALAMIN\PYRIDOXINE HYDROCHLORIDE\THIAMINE
     Indication: PRODUCT USED FOR UNKNOWN INDICATION
     Dosage: 1 DF, UNK
     Route: 041
     Dates: start: 20090106
  5. ROPION [Concomitant]
     Active Substance: FLURBIPROFEN AXETIL
     Dosage: 50 MG, UNK
     Route: 041
  6. TRANSAMIN [Concomitant]
     Active Substance: TRANEXAMIC ACID
     Dosage: 50 MG, UNK
     Route: 041
  7. DALACIN-S [Concomitant]
     Active Substance: CLINDAMYCIN
     Dosage: 2 DF, UNK
     Route: 041
     Dates: end: 20090108
  8. ADONA [Concomitant]
     Indication: PRODUCT USED FOR UNKNOWN INDICATION
     Dosage: 50 MG, UNK
     Route: 041
     Dates: start: 20090116
  9. SELBEX [Concomitant]
     Active Substance: TEPRENONE
     Indication: PRODUCT USED FOR UNKNOWN INDICATION
     Dosage: 150 MG, UNK
     Route: 048
     Dates: start: 20090106, end: 20090114
  10. AMINO ACIDS/CARBOHYDRATES/MINERALS/VITAMINS, [Concomitant]
     Active Substance: AMINO ACIDS\CARBOHYDRATES\MINERALS\VITAMINS
     Indication: PRODUCT USED FOR UNKNOWN INDICATION
     Dosage: 1000 ML, UNK
     Route: 041
     Dates: start: 20090106, end: 20090123
  11. VICCILLIN [Concomitant]
     Active Substance: AMPICILLIN
     Dosage: 3 G, UNK
     Route: 041
     Dates: end: 20090113
  12. ROPION [Concomitant]
     Active Substance: FLURBIPROFEN AXETIL
     Dosage: 50 MG, UNK
     Route: 041
  13. DECADRON [Suspect]
     Active Substance: DEXAMETHASONE
     Indication: PRODUCT USED FOR UNKNOWN INDICATION
     Dosage: UNK
     Dates: start: 20081225
  14. CARBENIN [Concomitant]
     Active Substance: BETAMIPRON\PANIPENEM
     Indication: PRODUCT USED FOR UNKNOWN INDICATION
     Dosage: 6 G, UNK
     Route: 041
     Dates: start: 20090113
  15. ROPION [Concomitant]
     Active Substance: FLURBIPROFEN AXETIL
     Dosage: 100 MG, UNK
     Route: 041
  16. ZOMETA [Suspect]
     Active Substance: ZOLEDRONIC ACID
     Indication: PLASMA CELL MYELOMA
     Dosage: UNK
     Route: 042
     Dates: start: 200608
  17. LENDORMIN D [Concomitant]
     Active Substance: BROTIZOLAM
     Indication: PRODUCT USED FOR UNKNOWN INDICATION
     Dosage: UNK
     Route: 048
     Dates: start: 20090106, end: 20090114
  18. VICCILLIN [Concomitant]
     Active Substance: AMPICILLIN
     Indication: PRODUCT USED FOR UNKNOWN INDICATION
     Dosage: 4 G, UNK
     Route: 041
     Dates: start: 20090106
  19. ROPION [Concomitant]
     Active Substance: FLURBIPROFEN AXETIL
     Indication: PRODUCT USED FOR UNKNOWN INDICATION
     Dosage: 50 MG, UNK
     Route: 041
     Dates: start: 20090114
  20. ROPION [Concomitant]
     Active Substance: FLURBIPROFEN AXETIL
     Dosage: 100 MG, UNK
     Route: 041
  21. PREDNISOLONE. [Concomitant]
     Active Substance: PREDNISOLONE
     Indication: PRODUCT USED FOR UNKNOWN INDICATION
     Dosage: 5 MG, UNK
     Route: 048
     Dates: start: 20090106, end: 20090114
  22. PURSENNID [SENNOSIDE A+B CALCIUM] [Concomitant]
     Active Substance: SENNOSIDES A AND B
     Indication: PRODUCT USED FOR UNKNOWN INDICATION
     Dosage: UNK
     Route: 048
     Dates: start: 20090106, end: 20090114
  23. DALACIN-S [Concomitant]
     Active Substance: CLINDAMYCIN
     Indication: PRODUCT USED FOR UNKNOWN INDICATION
     Dosage: 3 DF, UNK
     Route: 041
     Dates: start: 20090106
  24. ROPION [Concomitant]
     Active Substance: FLURBIPROFEN AXETIL
     Dosage: 250 MG, UNK
     Route: 041
  25. ROPION [Concomitant]
     Active Substance: FLURBIPROFEN AXETIL
     Dosage: 50 MG, UNK
     Route: 041
     Dates: end: 20090123
  26. MAGMITT [Concomitant]
     Active Substance: MAGNESIUM OXIDE
     Indication: PRODUCT USED FOR UNKNOWN INDICATION
     Dosage: 1500 MG, UNK
     Route: 048
     Dates: start: 20090106, end: 20090114
  27. ORGADRONE [Concomitant]
     Active Substance: DEXAMETHASONE SODIUM PHOSPHATE
     Indication: PRODUCT USED FOR UNKNOWN INDICATION
     Dosage: 2 DF, UNK
     Route: 041
     Dates: start: 20090106, end: 20090114
  28. ALEVIATIN [Concomitant]
     Active Substance: PHENYTOIN SODIUM
     Indication: PRODUCT USED FOR UNKNOWN INDICATION
     Dosage: 250 MG, UNK
     Route: 041
     Dates: start: 20090115, end: 20090119
  29. TRANSAMIN [Concomitant]
     Active Substance: TRANEXAMIC ACID
     Indication: PRODUCT USED FOR UNKNOWN INDICATION
     Dosage: 1 DF, UNK
     Dates: start: 20090116
  30. TARIVID [Concomitant]
     Active Substance: OFLOXACIN
     Indication: PRODUCT USED FOR UNKNOWN INDICATION
     Dosage: 10 ML, UNK
     Route: 048
     Dates: start: 20090116, end: 20090116

REACTIONS (24)
  - Tooth infection [Fatal]
  - Tooth avulsion [Fatal]
  - Meningitis bacterial [Fatal]
  - Otorrhoea [Fatal]
  - Immunodeficiency [Unknown]
  - Osteomyelitis [Fatal]
  - Blood creatinine increased [Unknown]
  - Blood lactate dehydrogenase increased [Unknown]
  - Ear infection [Fatal]
  - Hydrocephalus [Fatal]
  - Aspartate aminotransferase increased [Unknown]
  - Tooth loss [Fatal]
  - Depressed level of consciousness [Fatal]
  - Blood alkaline phosphatase increased [Unknown]
  - Blood glucose increased [Unknown]
  - White blood cell count increased [Fatal]
  - Red blood cell count decreased [Unknown]
  - Alanine aminotransferase increased [Unknown]
  - Haematocrit decreased [Unknown]
  - Gamma-glutamyltransferase increased [Unknown]
  - Osteonecrosis of jaw [Fatal]
  - Streptococcal infection [Fatal]
  - Haemoglobin decreased [Unknown]
  - Blood urea increased [Unknown]

NARRATIVE: CASE EVENT DATE: 20090106
